FAERS Safety Report 9468270 (Version 2)
Quarter: 2013Q3

REPORT INFORMATION
  Report Type: Spontaneous
  Country: US (occurrence: US)
  Receive Date: 20130821
  Receipt Date: 20130906
  Transmission Date: 20140515
  Serious: No
  Sender: FDA-Public Use
  Company Number: US-PFIZER INC-2013242055

PATIENT
  Age: 56 Year
  Sex: Female
  Weight: 58.05 kg

DRUGS (2)
  1. LYRICA [Suspect]
     Indication: FIBROMYALGIA
     Dosage: 75 MG, THREE TIMES A DAY OR FOUR TIMES A DAY
     Route: 048
     Dates: start: 2011, end: 2012
  2. ACETAMINOPHEN W/HYDROCODONE BITARTRATE [Concomitant]
     Indication: PAIN
     Dosage: HYDROCODONE BITARTRATE 7.5MG/ ACETAMINOPHEN 325MG, AS NEEDED
     Route: 048

REACTIONS (2)
  - Weight increased [Unknown]
  - Feeling drunk [Unknown]
